FAERS Safety Report 8074135-9 (Version None)
Quarter: 2011Q4

REPORT INFORMATION
  Report Type: 
  Country: None (occurrence: None)
  Receive Date: 20111221
  Receipt Date: 20110830
  Transmission Date: 20120403
  Serious: Yes (Other)
  Sender: FDA-Public Use
  Company Number: PHEH2009US08168

PATIENT
  Age: 66 Year
  Sex: Female

DRUGS (1)
  1. EXJADE [Suspect]
     Indication: NEOPLASM
     Dosage: 1000 MG, QD, ORAL ; 250 MG, TID, ORAL
     Route: 048
     Dates: start: 20060104, end: 20110822

REACTIONS (1)
  - RENAL FAILURE [None]
